FAERS Safety Report 4545016-X (Version None)
Quarter: 2005Q1

REPORT INFORMATION
  Report Type: 
  Country: None (occurrence: None)
  Receive Date: 20050105
  Receipt Date: 20041203
  Transmission Date: 20050727
  Serious: Yes (Other)
  Sender: FDA-Public Use
  Company Number: 12512877

PATIENT
  Age: 39 Year
  Sex: Female

DRUGS (5)
  1. EPIVIR [Suspect]
     Indication: HIV INFECTION
     Dosage: 300MG PER DAY
     Route: 048
     Dates: start: 19970324
  2. STAVUDINE [Suspect]
     Indication: HIV INFECTION
     Dosage: 1UNIT TWICE PER DAY
     Route: 048
     Dates: start: 20040330, end: 20040830
  3. EFAVIRENZ [Suspect]
     Indication: HIV INFECTION
     Dosage: 600MG PER DAY
     Route: 048
     Dates: start: 20020930, end: 20040121
  4. VIREAD [Suspect]
     Indication: HIV INFECTION
     Dosage: 245MG PER DAY
     Route: 048
     Dates: start: 20020930, end: 20040121
  5. KALETRA [Suspect]
     Indication: HIV INFECTION
     Dosage: 3UNIT TWICE PER DAY
     Route: 048
     Dates: start: 20040330, end: 20040830

REACTIONS (6)
  - DRUG EXPOSURE DURING PREGNANCY [None]
  - LISTERIOSIS [None]
  - PREMATURE BABY [None]
  - PREMATURE LABOUR [None]
  - PRURITUS [None]
  - TWIN PREGNANCY [None]
